FAERS Safety Report 20111925 (Version 1)
Quarter: 2021Q4

REPORT INFORMATION
  Report Type: Spontaneous
  Country: CA (occurrence: None)
  Receive Date: 20211125
  Receipt Date: 20211125
  Transmission Date: 20220303
  Serious: Yes (Other)
  Sender: FDA-Public Use
  Company Number: CA-ROCHE-2959563

PATIENT
  Age: 65 Year
  Sex: Female

DRUGS (5)
  1. VEMURAFENIB [Suspect]
     Active Substance: VEMURAFENIB
     Indication: Metastatic malignant melanoma
     Route: 065
     Dates: start: 20200903, end: 20210602
  2. BRAFTOVI [Suspect]
     Active Substance: ENCORAFENIB
     Indication: Metastatic malignant melanoma
     Route: 065
     Dates: start: 20210602, end: 20210810
  3. BRAFTOVI [Suspect]
     Active Substance: ENCORAFENIB
     Route: 065
  4. MEKTOVI [Suspect]
     Active Substance: BINIMETINIB
     Indication: Metastatic malignant melanoma
     Route: 065
     Dates: start: 20210602, end: 20210810
  5. MEKTOVI [Suspect]
     Active Substance: BINIMETINIB
     Route: 065

REACTIONS (3)
  - Fatigue [Unknown]
  - Toxicity to various agents [Unknown]
  - Neoplasm progression [Unknown]
